FAERS Safety Report 5313546-9 (Version None)
Quarter: 2007Q2

REPORT INFORMATION
  Report Type: 
  Country: None (occurrence: None)
  Receive Date: 20070501
  Receipt Date: 20060508
  Transmission Date: 20071010
  Serious: No
  Sender: FDA-Public Use
  Company Number: 2006UW09002

PATIENT
  Age: 63 Year
  Sex: Female
  Weight: 95.3 kg

DRUGS (4)
  1. ENTOCORT EC [Suspect]
     Indication: COLITIS COLLAGENOUS
     Route: 048
  2. SYNTHROID [Concomitant]
     Route: 048
  3. ESTRATEST [Concomitant]
  4. FIORICET [Concomitant]

REACTIONS (1)
  - HYPERSOMNIA [None]
